FAERS Safety Report 6801655-4 (Version None)
Quarter: 2010Q2

REPORT INFORMATION
  Report Type: 
  Country: None (occurrence: None)
  Receive Date: 20100629
  Receipt Date: 20100621
  Transmission Date: 20101027
  Serious: Yes (Other)
  Sender: FDA-Public Use
  Company Number: US-AMGEN-QUU419618

PATIENT
  Sex: Female

DRUGS (4)
  1. NPLATE [Suspect]
     Indication: IDIOPATHIC THROMBOCYTOPENIC PURPURA
     Dates: start: 20100428, end: 20100519
  2. CORTICOSTEROIDS [Concomitant]
     Dates: start: 20100228
  3. IMMU-G [Concomitant]
     Route: 042
     Dates: start: 20100428
  4. RITUXIMAB [Concomitant]
     Dates: start: 20100419

REACTIONS (2)
  - REFUSAL OF TREATMENT BY PATIENT [None]
  - TERMINAL STATE [None]
